FAERS Safety Report 9094888 (Version 1)
Quarter: 2013Q1

REPORT INFORMATION
  Report Type: Spontaneous
  Country: US (occurrence: None)
  Receive Date: 20130214
  Receipt Date: 20130214
  Transmission Date: 20140127
  Serious: Yes (Other)
  Sender: FDA-Public Use
  Company Number: None

PATIENT
  Age: 61 Year
  Sex: Female
  Weight: 81.65 kg

DRUGS (1)
  1. SIMVASTATIN 20 MGS BRISTOL LABORATORY [Suspect]
     Indication: BLOOD CHOLESTEROL INCREASED
     Dosage: 20MGS  ONCE DAILY
     Dates: start: 20100201, end: 20120510

REACTIONS (3)
  - Myalgia [None]
  - Muscle disorder [None]
  - Activities of daily living impaired [None]
